FAERS Safety Report 4679910-6 (Version None)
Quarter: 2005Q2

REPORT INFORMATION
  Report Type: 
  Country: None (occurrence: None)
  Receive Date: 20050602
  Receipt Date: 20050528
  Transmission Date: 20051028
  Serious: Yes (Death)
  Sender: FDA-Public Use
  Company Number: GB-GLAXOSMITHKLINE-B0382783A

PATIENT
  Age: 11 Year

DRUGS (2)
  1. PARACETAMOL [Suspect]
     Route: 065
  2. VALPROATE SODIUM [Suspect]
     Route: 065

REACTIONS (2)
  - HEPATIC NECROSIS [None]
  - OVERDOSE [None]
